FAERS Safety Report 5253930-5 (Version None)
Quarter: 2007Q1

REPORT INFORMATION
  Report Type: 
  Country: None (occurrence: None)
  Receive Date: 20070228
  Receipt Date: 20070228
  Transmission Date: 20070707
  Serious: Yes (Hospitalization)
  Sender: FDA-Public Use
  Company Number: None

PATIENT
  Sex: Female
  Weight: 44.4525 kg

DRUGS (4)
  1. BEVACIZUMAB [Suspect]
     Indication: COLON CANCER METASTATIC
     Dosage: 5MG/KG  Q 2WKS  IV DRIP
     Route: 041
     Dates: start: 20061228, end: 20070214
  2. BEVACIZUMAB [Suspect]
     Indication: METASTASES TO LIVER
     Dosage: 5MG/KG  Q 2WKS  IV DRIP
     Route: 041
     Dates: start: 20061228, end: 20070214
  3. CAPECITABINE [Suspect]
     Indication: COLON CANCER METASTATIC
     Dosage: 1800 MG BID X14 DOSES Q2 WKS PO
     Route: 048
     Dates: start: 20061228, end: 20070220
  4. CAPECITABINE [Suspect]
     Indication: METASTASES TO LIVER
     Dosage: 1800 MG BID X14 DOSES Q2 WKS PO
     Route: 048
     Dates: start: 20061228, end: 20070220

REACTIONS (3)
  - DEHYDRATION [None]
  - HYPONATRAEMIA [None]
  - NAUSEA [None]
